FAERS Safety Report 7202840-2 (Version None)
Quarter: 2010Q4

REPORT INFORMATION
  Report Type: 
  Country: None (occurrence: None)
  Receive Date: 20101229
  Receipt Date: 20101227
  Transmission Date: 20110411
  Serious: Yes (Other)
  Sender: FDA-Public Use
  Company Number: JP-PFIZER INC-2010174004

PATIENT
  Age: 69 Year
  Sex: Female

DRUGS (4)
  1. FARMORUBICIN [Suspect]
     Indication: BREAST CANCER
     Dosage: 40 MG, UNK
     Route: 041
     Dates: end: 20101111
  2. FLUOROURACIL [Concomitant]
     Dosage: UNK
     Route: 041
     Dates: end: 20101111
  3. ENDOXAN [Concomitant]
     Dosage: UNK
     Route: 041
     Dates: end: 20101111
  4. TRASTUZUMAB [Concomitant]
     Dosage: 80 MG, UNK
     Route: 041
     Dates: start: 20100809, end: 20101111

REACTIONS (1)
  - INTERSTITIAL LUNG DISEASE [None]
